FAERS Safety Report 22719415 (Version 5)
Quarter: 2023Q4

REPORT INFORMATION
  Report Type: Report from Study
  Country: JP (occurrence: JP)
  Receive Date: 20230718
  Receipt Date: 20231012
  Transmission Date: 20240109
  Serious: Yes (Hospitalization)
  Sender: FDA-Public Use
  Company Number: JP-JNJFOC-20230728977

PATIENT
  Age: 76 Year
  Sex: Male
  Weight: 55.5 kg

DRUGS (33)
  1. AMIVANTAMAB [Suspect]
     Active Substance: AMIVANTAMAB
     Indication: Non-small cell lung cancer metastatic
     Route: 042
     Dates: start: 20220405, end: 20230330
  2. PEMETREXED [Suspect]
     Active Substance: PEMETREXED
     Indication: Non-small cell lung cancer metastatic
     Route: 042
     Dates: start: 20220405, end: 20230714
  3. CARBOPLATIN [Concomitant]
     Active Substance: CARBOPLATIN
     Indication: Non-small cell lung cancer metastatic
     Route: 042
     Dates: start: 20220405, end: 20220615
  4. BILASTINE [Concomitant]
     Active Substance: BILASTINE
     Indication: Rhinitis allergic
     Route: 048
     Dates: start: 20220404
  5. DUTASTERIDE [Concomitant]
     Active Substance: DUTASTERIDE
     Indication: Benign prostatic hyperplasia
     Route: 048
     Dates: start: 20220405
  6. SENNOSIDES A AND B [Concomitant]
     Active Substance: SENNOSIDES A AND B
     Indication: Constipation
     Route: 048
     Dates: start: 20220407
  7. SENNOSIDES A AND B [Concomitant]
     Active Substance: SENNOSIDES A AND B
     Route: 048
     Dates: start: 20220506
  8. GLYCOSAMINOGLYCANS [Concomitant]
     Active Substance: GLYCOSAMINOGLYCANS
     Indication: Prophylaxis
     Route: 061
     Dates: start: 20220411
  9. SODIUM GUALENATE MONOHYDRATE [Concomitant]
     Active Substance: SODIUM GUALENATE MONOHYDRATE
     Indication: Stomatitis
     Route: 061
     Dates: start: 20220517
  10. DEXAMETHASONE [Concomitant]
     Active Substance: DEXAMETHASONE
     Indication: Stomatitis
     Dosage: 1 (ORAL OINTMENT 0.1%)
     Route: 061
     Dates: start: 20220517
  11. XYLOCAINE [Concomitant]
     Active Substance: LIDOCAINE HYDROCHLORIDE
     Indication: Stomatitis
     Dosage: SOLUTION 4%
     Route: 048
     Dates: start: 20220517
  12. FUSIDATE SODIUM [Concomitant]
     Active Substance: FUSIDATE SODIUM
     Indication: Decubitus ulcer
     Route: 061
     Dates: start: 20220629
  13. ELIQUIS [Concomitant]
     Active Substance: APIXABAN
     Indication: Venous thrombosis limb
     Route: 048
     Dates: start: 20220802
  14. BETAMETHASONE VALERATE [Concomitant]
     Active Substance: BETAMETHASONE VALERATE
     Indication: Cellulitis
     Dosage: 1
     Route: 061
     Dates: start: 20220831
  15. BETAMETHASONE VALERATE [Concomitant]
     Active Substance: BETAMETHASONE VALERATE
     Indication: Rash
  16. CEFCAPENE PIVOXIL HYDROCHLORIDE [Concomitant]
     Active Substance: CEFCAPENE PIVOXIL HYDROCHLORIDE
     Indication: Cellulitis
     Route: 048
     Dates: start: 20220908
  17. CLOBETASOL PROPIONATE [Concomitant]
     Active Substance: CLOBETASOL PROPIONATE
     Indication: Paronychia
     Dosage: 1
     Route: 061
     Dates: start: 20220908
  18. MYSER [DIFLUPREDNATE] [Concomitant]
     Indication: Erythema
     Dosage: 1
     Route: 061
     Dates: start: 20220908
  19. FLUTICASONE FUROATE [Concomitant]
     Active Substance: FLUTICASONE FUROATE
     Indication: Rhinitis allergic
     Dosage: 27.5 MG METERED NASAL SPRAY
     Route: 065
     Dates: start: 20221130
  20. PREGABALIN [Concomitant]
     Active Substance: PREGABALIN
     Indication: Hypoaesthesia
     Dosage: OD
     Route: 048
     Dates: start: 20230209
  21. PREGABALIN [Concomitant]
     Active Substance: PREGABALIN
     Indication: Hypoaesthesia
     Route: 048
     Dates: start: 20230302
  22. LASCUFLOXACIN HYDROCHLORIDE [Concomitant]
     Active Substance: LASCUFLOXACIN HYDROCHLORIDE
     Indication: C-reactive protein increased
     Route: 048
     Dates: start: 20230223
  23. LASCUFLOXACIN HYDROCHLORIDE [Concomitant]
     Active Substance: LASCUFLOXACIN HYDROCHLORIDE
     Route: 048
     Dates: start: 20230421
  24. METOCLOPRAMIDE [Concomitant]
     Active Substance: METOCLOPRAMIDE
     Indication: Nausea
     Route: 048
     Dates: start: 20230307
  25. CALONAL [Concomitant]
     Active Substance: ACETAMINOPHEN
     Indication: Non-cardiac chest pain
     Route: 048
     Dates: start: 20230413
  26. CALONAL [Concomitant]
     Active Substance: ACETAMINOPHEN
     Indication: Pyrexia
     Route: 048
     Dates: start: 20230709, end: 20230713
  27. LASCUFLOXACIN HYDROCHLORIDE [Concomitant]
     Active Substance: LASCUFLOXACIN HYDROCHLORIDE
     Indication: Infection prophylaxis
     Route: 048
     Dates: start: 20230623, end: 20230703
  28. LASCUFLOXACIN HYDROCHLORIDE [Concomitant]
     Active Substance: LASCUFLOXACIN HYDROCHLORIDE
     Indication: C-reactive protein increased
     Route: 048
     Dates: start: 20230421
  29. LASCUFLOXACIN HYDROCHLORIDE [Concomitant]
     Active Substance: LASCUFLOXACIN HYDROCHLORIDE
     Route: 048
     Dates: start: 20230623, end: 20230703
  30. VONOPRAZAN FUMARATE [Concomitant]
     Active Substance: VONOPRAZAN FUMARATE
     Indication: Gastrointestinal disorder therapy
     Route: 048
  31. MAGNESIUM OXIDE [Concomitant]
     Active Substance: MAGNESIUM OXIDE
     Indication: Constipation
     Route: 048
     Dates: start: 20220408
  32. HEMOPORISON [Concomitant]
     Indication: Prophylaxis
     Dosage: 1
     Route: 061
     Dates: start: 20230302
  33. HEMOPORISON [Concomitant]
     Indication: Haemorrhoids

REACTIONS (1)
  - Impetigo [Recovering/Resolving]

NARRATIVE: CASE EVENT DATE: 20230714
